FAERS Safety Report 12786765 (Version 5)
Quarter: 2017Q1

REPORT INFORMATION
  Report Type: Spontaneous
  Country: FR (occurrence: FR)
  Receive Date: 20160927
  Receipt Date: 20170203
  Transmission Date: 20170428
  Serious: Yes (Other)
  Sender: FDA-Public Use
  Company Number: FR-SA-2016SA160724

PATIENT
  Age: 84 Year
  Sex: Female
  Weight: 70 kg

DRUGS (16)
  1. DUOPLAVIN [Suspect]
     Active Substance: ASPIRIN\CLOPIDOGREL
     Indication: STENT PLACEMENT
     Route: 048
     Dates: start: 20160503, end: 20160817
  2. COTAREG [Suspect]
     Active Substance: HYDROCHLOROTHIAZIDE\VALSARTAN
     Route: 048
     Dates: start: 20160818
  3. HYPERIUM [Suspect]
     Active Substance: RILMENIDINE PHOSPHATE
     Route: 048
     Dates: start: 20160818
  4. DIFFU K [Concomitant]
     Active Substance: POTASSIUM CHLORIDE
     Dosage: DOSE:1 UNIT(S)
     Dates: start: 20160829
  5. ALDACTONE [Suspect]
     Active Substance: SPIRONOLACTONE
     Route: 048
  6. EUPRESSYL [Concomitant]
     Active Substance: URAPIDIL
     Dosage: DOSE:1 UNIT(S)
     Dates: start: 20160829
  7. DOLIPRANE [Concomitant]
     Active Substance: ACETAMINOPHEN
     Indication: PAIN
     Dosage: DOSE:1 UNIT(S)
     Dates: start: 20160829
  8. PLAVIX [Suspect]
     Active Substance: CLOPIDOGREL BISULFATE
     Indication: STENT PLACEMENT
     Route: 048
     Dates: start: 20160503, end: 20160817
  9. NEXIUM [Concomitant]
     Active Substance: ESOMEPRAZOLE MAGNESIUM
     Dosage: DOSE:1 UNIT(S)
     Dates: start: 20160818
  10. ASPEGIC [Suspect]
     Active Substance: ASPIRIN DL-LYSINE
     Dosage: DOSE:1 UNIT(S)
     Route: 048
     Dates: start: 20160829
  11. OMEPRAZOLE. [Suspect]
     Active Substance: OMEPRAZOLE
     Route: 048
     Dates: start: 20160829
  12. PARACETAMOL [Suspect]
     Active Substance: ACETAMINOPHEN
     Route: 048
     Dates: start: 20160818
  13. PLAVIX [Suspect]
     Active Substance: CLOPIDOGREL BISULFATE
     Indication: STENT PLACEMENT
     Route: 048
     Dates: start: 20160829
  14. ASPIRIN PROTECT [Suspect]
     Active Substance: ASPIRIN
     Route: 048
     Dates: start: 20160818
  15. TOPALGIC [Concomitant]
     Active Substance: TRAMADOL
     Dosage: DOSE:1 UNIT(S)
     Dates: start: 20160818
  16. BRILIQUE [Concomitant]
     Active Substance: TICAGRELOR
     Dates: start: 20160818, end: 20160829

REACTIONS (9)
  - Cardiovascular disorder [Unknown]
  - Oedema peripheral [Not Recovered/Not Resolved]
  - Cerebrovascular accident [Unknown]
  - Product use issue [Unknown]
  - Renal disorder [Unknown]
  - Gastrointestinal disorder [Unknown]
  - Skin haemorrhage [Not Recovered/Not Resolved]
  - Lung disorder [Unknown]
  - Overdose [Unknown]

NARRATIVE: CASE EVENT DATE: 20160503
